FAERS Safety Report 17754760 (Version 2)
Quarter: 2020Q2

REPORT INFORMATION
  Report Type: Spontaneous
  Country: US (occurrence: US)
  Receive Date: 20200506
  Receipt Date: 20200626
  Transmission Date: 20200714
  Serious: No
  Sender: FDA-Public Use
  Company Number: US-AMGEN-USASP2020070017

PATIENT
  Age: 47 Year
  Sex: Female
  Weight: 84.37 kg

DRUGS (1)
  1. ENBREL [Suspect]
     Active Substance: ETANERCEPT
     Indication: RHEUMATOID ARTHRITIS
     Dosage: 1 INJECTION WEEKLY(1 IN 1 WK)
     Route: 065
     Dates: start: 201901, end: 202001

REACTIONS (1)
  - Drug ineffective [Unknown]
